FAERS Safety Report 11003967 (Version 1)
Quarter: 2015Q2

REPORT INFORMATION
  Report Type: Spontaneous
  Country: US (occurrence: None)
  Receive Date: 20150408
  Receipt Date: 20150408
  Transmission Date: 20150821
  Serious: No
  Sender: FDA-Public Use
  Company Number: None

PATIENT
  Sex: Female

DRUGS (12)
  1. AFINITOR [Suspect]
     Active Substance: EVEROLIMUS
     Indication: NEOPLASM MALIGNANT
     Route: 048
     Dates: start: 20130606
  2. ZITHROMAX [Concomitant]
     Active Substance: AZITHROMYCIN DIHYDRATE
  3. CYCLOBENZAPRINE [Concomitant]
     Active Substance: CYCLOBENZAPRINE
  4. AMOXICILLIN. [Concomitant]
     Active Substance: AMOXICILLIN
  5. XARELTO [Concomitant]
     Active Substance: RIVAROXABAN
  6. NAPROXEN. [Concomitant]
     Active Substance: NAPROXEN
  7. AROMASIN [Concomitant]
     Active Substance: EXEMESTANE
  8. JAKAFI [Concomitant]
     Active Substance: RUXOLITINIB
  9. KETOCONAZOLE. [Concomitant]
     Active Substance: KETOCONAZOLE
  10. FISH OIL [Concomitant]
     Active Substance: FISH OIL
  11. OXYCODONE/ACETAMINOPHEN [Concomitant]
     Active Substance: ACETAMINOPHEN\OXYCODONE HYDROCHLORIDE
  12. VALIUM [Concomitant]
     Active Substance: DIAZEPAM

REACTIONS (1)
  - Disease progression [None]
